FAERS Safety Report 5249593-5 (Version None)
Quarter: 2007Q1

REPORT INFORMATION
  Report Type: 
  Country: None (occurrence: None)
  Receive Date: 20070228
  Receipt Date: 20060412
  Transmission Date: 20070707
  Serious: No
  Sender: FDA-Public Use
  Company Number: US-GLAXOSMITHKLINE-A0600086A

PATIENT
  Sex: Female

DRUGS (17)
  1. IMITREX [Suspect]
     Indication: MIGRAINE
     Dosage: 1INJ AS REQUIRED
     Route: 058
     Dates: start: 20051201
  2. ALBUTEROL [Concomitant]
  3. ADVAIR DISKUS 100/50 [Concomitant]
  4. CARAFATE [Concomitant]
  5. LORAZEPAM [Concomitant]
  6. IMIPRAMINE HCL [Concomitant]
  7. MUCINEX [Concomitant]
  8. TYLENOL [Concomitant]
  9. ORTHO EVRA [Concomitant]
  10. BENZONATATE [Concomitant]
  11. LIDOCAINE [Concomitant]
  12. PHENERGAN HCL [Concomitant]
  13. PHENERGAN W/ CODEINE [Concomitant]
  14. LONOX [Concomitant]
  15. PRILOSEC [Concomitant]
  16. ATROVENT [Concomitant]
  17. ZITHROMAX [Concomitant]

REACTIONS (3)
  - DRUG INEFFECTIVE [None]
  - INJECTION SITE BRUISING [None]
  - PHARMACEUTICAL PRODUCT COMPLAINT [None]
